FAERS Safety Report 8190969-4 (Version None)
Quarter: 2012Q1

REPORT INFORMATION
  Report Type: 
  Country: None (occurrence: None)
  Receive Date: 20120307
  Receipt Date: 20120301
  Transmission Date: 20120608
  Serious: Yes (Hospitalization, Other)
  Sender: FDA-Public Use
  Company Number: DE-PFIZER INC-2012049282

PATIENT
  Age: 82 Year
  Sex: Female

DRUGS (3)
  1. VANCOMYCIN HCL [Suspect]
     Indication: SOFT TISSUE INFECTION
     Dosage: 2 G, DAILY
     Route: 042
  2. RIFAMPICIN [Concomitant]
     Dosage: 2 X 300 G, DAILY
  3. MEROPENEM [Concomitant]
     Dosage: 2 X 1 G, DAILY

REACTIONS (6)
  - HYPOTENSION [None]
  - BRADYCARDIA [None]
  - ACCIDENTAL OVERDOSE [None]
  - RENAL FAILURE ACUTE [None]
  - ANURIA [None]
  - HYPERKALAEMIA [None]
